FAERS Safety Report 14995165 (Version 1)
Quarter: 2018Q2

REPORT INFORMATION
  Report Type: Spontaneous
  Country: JP (occurrence: JP)
  Receive Date: 20180611
  Receipt Date: 20180611
  Transmission Date: 20180711
  Serious: Yes (Other)
  Sender: FDA-Public Use
  Company Number: JP-GLAXOSMITHKLINE-JP2018JPN099263

PATIENT
  Age: 80 Year
  Sex: Male

DRUGS (1)
  1. SERETIDE [Suspect]
     Active Substance: FLUTICASONE PROPIONATE\SALMETEROL XINAFOATE
     Indication: ASTHMA
     Dosage: UNK UNK, QD
     Route: 055

REACTIONS (7)
  - Cardiac failure [Unknown]
  - Urticaria [Unknown]
  - Inappropriate schedule of drug administration [Unknown]
  - Emphysema [Unknown]
  - Pulmonary oedema [Unknown]
  - Gait disturbance [Unknown]
  - Wheelchair user [Unknown]
